FAERS Safety Report 4745873-8 (Version None)
Quarter: 2005Q3

REPORT INFORMATION
  Report Type: 
  Country: None (occurrence: None)
  Receive Date: 20050816
  Receipt Date: 20050808
  Transmission Date: 20060218
  Serious: Yes (Other)
  Sender: FDA-Public Use
  Company Number: 200517065GDDC

PATIENT
  Age: 20 Year
  Sex: Male

DRUGS (1)
  1. METRONIDAZOLE [Suspect]
     Route: 048

REACTIONS (18)
  - AGNOSIA [None]
  - ALLODYNIA [None]
  - AREFLEXIA [None]
  - COLOUR VISION TESTS ABNORMAL RED-GREEN [None]
  - COORDINATION ABNORMAL [None]
  - DEMYELINATION [None]
  - DRUG TOXICITY [None]
  - DYSAESTHESIA [None]
  - DYSARTHRIA [None]
  - HYPOREFLEXIA [None]
  - NERVOUS SYSTEM DISORDER [None]
  - NEUROPATHY PERIPHERAL [None]
  - NUCLEAR MAGNETIC RESONANCE IMAGING BRAIN ABNORMAL [None]
  - PAIN [None]
  - PARAESTHESIA [None]
  - PHOTOPSIA [None]
  - VISUAL ACUITY REDUCED [None]
  - VISUAL EVOKED POTENTIALS ABNORMAL [None]
